FAERS Safety Report 18047709 (Version 1)
Quarter: 2020Q3

REPORT INFORMATION
  Report Type: Spontaneous
  Country: US (occurrence: US)
  Receive Date: 20200721
  Receipt Date: 20200721
  Transmission Date: 20201103
  Serious: No
  Sender: FDA-Public Use
  Company Number: US-STRIDES ARCOLAB LIMITED-2019SP010227

PATIENT
  Age: 72 Year
  Sex: Male

DRUGS (2)
  1. DONEPEZIL. [Suspect]
     Active Substance: DONEPEZIL
     Indication: URINARY RETENTION
     Dosage: UNK
     Route: 065
  2. BETHANECHOL [Interacting]
     Active Substance: BETHANECHOL
     Indication: URINARY RETENTION
     Dosage: UNK
     Route: 065

REACTIONS (2)
  - Potentiating drug interaction [Unknown]
  - Off label use [Unknown]
